FAERS Safety Report 8916645 (Version 1)
Quarter: 2012Q4

REPORT INFORMATION
  Report Type: 
  Country: FR (occurrence: FR)
  Receive Date: 20121120
  Receipt Date: 20121120
  Transmission Date: 20130627
  Serious: Yes (Hospitalization)
  Sender: FDA-Public Use
  Company Number: FR-ROCHE-622230

PATIENT
  Age: 18 Year
  Sex: Female

DRUGS (2)
  1. ROCEPHINE [Suspect]
     Indication: ESCHERICHIA URINARY TRACT INFECTION
     Dosage: START DATE REPORTED AS 12 DEC 2008 (OR 13 DEC 2008).
     Route: 042
     Dates: start: 200812, end: 20081218
  2. TARGOCID [Suspect]
     Indication: ENTEROCOCCAL SEPSIS
     Dosage: IT WAS REPORTED THAT THE PATIENT RECEIVED HIS SECOND INJECTION AFTER 12 HOURS.
     Route: 042
     Dates: start: 20081215, end: 20081216

REACTIONS (3)
  - Toxic skin eruption [Recovered/Resolved]
  - Liver disorder [Recovered/Resolved]
  - Renal disorder [Recovered/Resolved]
